FAERS Safety Report 4619734-9 (Version None)
Quarter: 2005Q1

REPORT INFORMATION
  Report Type: 
  Country: None (occurrence: None)
  Receive Date: 20050325
  Receipt Date: 20050311
  Transmission Date: 20050727
  Serious: Yes (Other)
  Sender: FDA-Public Use
  Company Number: JP-MERCK-0503USA02558

PATIENT
  Age: 55 Year
  Sex: Female

DRUGS (6)
  1. DECADRON [Suspect]
     Route: 048
  2. IMATINIB MESYLATE [Concomitant]
     Route: 065
  3. ENDOXAN [Concomitant]
     Route: 065
  4. ONCOVIN [Concomitant]
     Route: 065
  5. METHOTREXATE [Concomitant]
     Route: 065
  6. CYTARABINE [Concomitant]
     Route: 065

REACTIONS (1)
  - DISSEMINATED INTRAVASCULAR COAGULATION [None]
